FAERS Safety Report 22335662 (Version 1)
Quarter: 2023Q2

REPORT INFORMATION
  Report Type: Report from Study
  Country: FR (occurrence: FR)
  Receive Date: 20230518
  Receipt Date: 20230518
  Transmission Date: 20230722
  Serious: Yes (Hospitalization, Other)
  Sender: FDA-Public Use
  Company Number: FR-JNJFOC-20220405779

PATIENT
  Age: 15 Year
  Sex: Female
  Weight: 57.7 kg

DRUGS (15)
  1. ESKETAMINE [Suspect]
     Active Substance: ESKETAMINE
     Indication: Major depression
     Dates: start: 20211014, end: 20211108
  2. ESKETAMINE [Suspect]
     Active Substance: ESKETAMINE
     Indication: Suicidal ideation
  3. PLACEBO [Suspect]
     Active Substance: UNSPECIFIED INGREDIENT
     Indication: Major depression
     Route: 048
     Dates: start: 20211014, end: 20211108
  4. PLACEBO [Suspect]
     Active Substance: UNSPECIFIED INGREDIENT
     Indication: Suicidal ideation
  5. CYAMEMAZINE [Suspect]
     Active Substance: CYAMEMAZINE
     Indication: Suicidal ideation
     Dosage: AS NECESSARY
     Route: 048
     Dates: start: 20220120, end: 20220405
  6. CYAMEMAZINE [Suspect]
     Active Substance: CYAMEMAZINE
     Dosage: ONCE
     Route: 048
     Dates: start: 20220328, end: 20220328
  7. FLUOXETINE [Suspect]
     Active Substance: FLUOXETINE HYDROCHLORIDE
     Indication: Major depression
     Route: 048
     Dates: start: 20211015, end: 20211130
  8. FLUOXETINE [Suspect]
     Active Substance: FLUOXETINE HYDROCHLORIDE
     Dosage: DAILY
     Route: 048
     Dates: start: 20211201, end: 20211213
  9. FLUOXETINE [Suspect]
     Active Substance: FLUOXETINE HYDROCHLORIDE
     Dosage: DAILY
     Route: 048
     Dates: start: 20211214
  10. FLUOXETINE [Suspect]
     Active Substance: FLUOXETINE HYDROCHLORIDE
     Dosage: ONCE
     Route: 048
     Dates: start: 20220328, end: 20220328
  11. HYDROXYZINE-2 HCL [Concomitant]
     Indication: Anxiety
     Dosage: AS NECESSARY
     Route: 048
     Dates: start: 20211013
  12. ARIPIPRAZOLE [Concomitant]
     Active Substance: ARIPIPRAZOLE
     Indication: Anxiety
     Dosage: DAILY
     Route: 048
     Dates: start: 20211126, end: 20220116
  13. ARIPIPRAZOLE [Concomitant]
     Active Substance: ARIPIPRAZOLE
     Dosage: DAILY
     Route: 048
     Dates: start: 20220117
  14. MELATONIN [Concomitant]
     Active Substance: MELATONIN
     Indication: Anxiety
     Dosage: DAILY?DOSE ALSO REPORTED AS 2 MG
     Route: 048
     Dates: start: 20220117, end: 20220120
  15. PRAZEPAM [Concomitant]
     Active Substance: PRAZEPAM
     Indication: Suicidal ideation
     Dosage: AS NECESSARY
     Route: 048
     Dates: start: 20220120, end: 20220217

REACTIONS (1)
  - Suicide attempt [Recovered/Resolved]

NARRATIVE: CASE EVENT DATE: 20220328
